FAERS Safety Report 5940399-8 (Version None)
Quarter: 2008Q4

REPORT INFORMATION
  Report Type: 
  Country: None (occurrence: None)
  Receive Date: 20081104
  Receipt Date: 20081028
  Transmission Date: 20090506
  Serious: No
  Sender: FDA-Public Use
  Company Number: FR-EISAI MEDICAL RESEARCH-E7867-00011-SPO-FR

PATIENT
  Age: 64 Year
  Sex: Male

DRUGS (1)
  1. GLIADEL [Suspect]
     Indication: GLIOMA
     Route: 018
     Dates: start: 20081024

REACTIONS (3)
  - CSF PROTEIN INCREASED [None]
  - DEPRESSED LEVEL OF CONSCIOUSNESS [None]
  - MENINGISM [None]
